FAERS Safety Report 17868866 (Version 3)
Quarter: 2020Q3

REPORT INFORMATION
  Report Type: Report from Study
  Country: None (occurrence: BE)
  Receive Date: 20200607
  Receipt Date: 20200830
  Transmission Date: 20201103
  Serious: Yes (Hospitalization)
  Sender: FDA-Public Use
  Company Number: BE-ABBVIE-20K-013-3431438-00

PATIENT
  Sex: Female
  Weight: 68 kg

DRUGS (3)
  1. DUODOPA [Suspect]
     Active Substance: CARBIDOPA\LEVODOPA
     Dosage: MD=0ML, CD=2.2ML/HR DURING 16HRS, ED=0.8ML
     Route: 050
     Dates: start: 20190510, end: 20190920
  2. DUODOPA [Suspect]
     Active Substance: CARBIDOPA\LEVODOPA
     Indication: PARKINSON^S DISEASE
     Dosage: UNKNOWN DOSAGES
     Route: 050
     Dates: start: 20100308, end: 20190510
  3. DUODOPA [Suspect]
     Active Substance: CARBIDOPA\LEVODOPA
     Dosage: MD=0ML, CD=2ML/HR DURING 16HRS, ED=0.8ML
     Route: 050
     Dates: start: 20190920

REACTIONS (5)
  - Oxygen saturation decreased [Unknown]
  - Anaemia [Unknown]
  - Discomfort [Unknown]
  - Malaise [Unknown]
  - General physical health deterioration [Unknown]

NARRATIVE: CASE EVENT DATE: 2020
